FAERS Safety Report 4868048-0 (Version None)
Quarter: 2005Q4

REPORT INFORMATION
  Report Type: 
  Country: None (occurrence: None)
  Receive Date: 20051229
  Receipt Date: 20051219
  Transmission Date: 20060501
  Serious: Yes (Death)
  Sender: FDA-Public Use
  Company Number: AU-ROCHE-429013

PATIENT
  Age: 32 Year
  Sex: Male

DRUGS (3)
  1. CLONAZEPAM [Suspect]
     Indication: DRUG USE FOR UNKNOWN INDICATION
     Route: 030
  2. CLOPIXOL [Suspect]
     Dosage: DRUG NAME REPORTED AS CLOPIXOL- ACUPHASE.
     Route: 030
  3. RISPERIDONE [Suspect]
     Indication: DRUG USE FOR UNKNOWN INDICATION
     Route: 065

REACTIONS (2)
  - DRUG LEVEL INCREASED [None]
  - RESPIRATORY ARREST [None]
